FAERS Safety Report 18471752 (Version 4)
Quarter: 2023Q4

REPORT INFORMATION
  Report Type: Report from Study
  Country: HU (occurrence: HU)
  Receive Date: 20201105
  Receipt Date: 20231110
  Transmission Date: 20240109
  Serious: Yes (Other)
  Sender: FDA-Public Use
  Company Number: HU-TAKEDA-2020TUS046360

PATIENT
  Age: 3 Year
  Sex: Male
  Weight: 18 kg

DRUGS (34)
  1. ADVATE [Suspect]
     Active Substance: ANTIHEMOPHILIC FACTOR, HUMAN RECOMBINANT
     Indication: Factor VIII deficiency
     Dosage: UNK
     Route: 042
     Dates: start: 20150224
  2. ADVATE [Suspect]
     Active Substance: ANTIHEMOPHILIC FACTOR, HUMAN RECOMBINANT
     Indication: Factor VIII deficiency
     Dosage: UNK
     Route: 042
     Dates: start: 20150224
  3. ADVATE [Suspect]
     Active Substance: ANTIHEMOPHILIC FACTOR, HUMAN RECOMBINANT
     Indication: Factor VIII deficiency
     Dosage: UNK
     Route: 042
     Dates: start: 20150224
  4. LACTOBACILLUS ACIDOPHILUS [Concomitant]
     Active Substance: LACTOBACILLUS ACIDOPHILUS
     Indication: Diarrhoea
     Dosage: 7 MILLILITER, QD
     Route: 065
     Dates: start: 20150323, end: 20150326
  5. SMECTA [Concomitant]
     Active Substance: MONTMORILLONITE
     Indication: Diarrhoea
     Dosage: 3 GRAM, TID
     Route: 065
     Dates: start: 20150326, end: 20150330
  6. SMECTA [Concomitant]
     Active Substance: MONTMORILLONITE
     Dosage: 3 GRAM, TID
     Route: 065
     Dates: start: 20150618, end: 20150620
  7. ASCORBIC ACID [Concomitant]
     Active Substance: ASCORBIC ACID
     Indication: Diarrhoea
     Dosage: 1 DOSAGE FORM, QD
     Route: 065
     Dates: start: 20150326, end: 20150402
  8. Daedalonetta [Concomitant]
     Indication: Vomiting
     Dosage: 1 DOSAGE FORM, QD
     Route: 065
     Dates: start: 20150324, end: 20150324
  9. Daedalonetta [Concomitant]
     Dosage: 1 DOSAGE FORM, QD
     Route: 065
     Dates: start: 20190125, end: 20190125
  10. FLUIMUCIL [Concomitant]
     Active Substance: ACETYLCYSTEINE
     Indication: Cough
     Dosage: 5 MILLILITER, BID
     Route: 065
     Dates: start: 20150516, end: 20150520
  11. ACETAMINOPHEN [Concomitant]
     Active Substance: ACETAMINOPHEN
     Indication: Pyrexia
     Dosage: 250 MILLIGRAM, QD
     Route: 065
     Dates: start: 20150516, end: 20150517
  12. ACETAMINOPHEN [Concomitant]
     Active Substance: ACETAMINOPHEN
     Dosage: 250 MILLIGRAM, QD
     Route: 065
     Dates: start: 20170625, end: 20170626
  13. ACETAMINOPHEN [Concomitant]
     Active Substance: ACETAMINOPHEN
     Dosage: 250 MILLIGRAM, QD
     Route: 065
     Dates: start: 20161208, end: 20161210
  14. ACETAMINOPHEN [Concomitant]
     Active Substance: ACETAMINOPHEN
     Dosage: 1 DOSAGE FORM, QD
     Route: 065
     Dates: start: 20190530, end: 20190530
  15. OXYMETAZOLINE [Concomitant]
     Active Substance: OXYMETAZOLINE
     Indication: Nasal congestion
     Dosage: 1 DOSAGE FORM, TID
     Route: 065
     Dates: start: 20150517, end: 20150520
  16. OXYMETAZOLINE [Concomitant]
     Active Substance: OXYMETAZOLINE
     Indication: Rhinorrhoea
     Dosage: 1 DOSAGE FORM, TID
     Route: 065
     Dates: start: 20160414, end: 20160419
  17. OXYMETAZOLINE [Concomitant]
     Active Substance: OXYMETAZOLINE
     Indication: Otitis media
     Dosage: 1 DOSAGE FORM, TID
     Route: 065
     Dates: start: 20171022, end: 20171023
  18. OXYMETAZOLINE [Concomitant]
     Active Substance: OXYMETAZOLINE
     Dosage: 1 DOSAGE FORM, TID
     Route: 065
     Dates: start: 20171216, end: 20171224
  19. OXYMETAZOLINE [Concomitant]
     Active Substance: OXYMETAZOLINE
     Dosage: 1 GTT DROPS, TID
     Route: 065
     Dates: start: 20180808, end: 20180812
  20. METAMIZOLE SODIUM [Concomitant]
     Active Substance: METAMIZOLE SODIUM
     Indication: Pyrexia
     Dosage: 10 GTT DROPS, QD
     Route: 065
     Dates: start: 20161208, end: 20161210
  21. METAMIZOLE SODIUM [Concomitant]
     Active Substance: METAMIZOLE SODIUM
     Dosage: 10 GTT DROPS, QD
     Route: 065
     Dates: start: 20170502, end: 20170502
  22. METAMIZOLE SODIUM [Concomitant]
     Active Substance: METAMIZOLE SODIUM
     Dosage: 10 GTT DROPS, TID
     Route: 065
     Dates: start: 20170817, end: 20170818
  23. METAMIZOLE SODIUM [Concomitant]
     Active Substance: METAMIZOLE SODIUM
     Dosage: 10 GTT DROPS, BID
     Route: 065
     Dates: start: 20171216, end: 20171217
  24. METAMIZOLE SODIUM [Concomitant]
     Active Substance: METAMIZOLE SODIUM
     Dosage: 10 GTT DROPS
     Route: 065
     Dates: start: 20180630, end: 20180702
  25. METAMIZOLE SODIUM [Concomitant]
     Active Substance: METAMIZOLE SODIUM
     Dosage: 18 GTT DROPS, BID
     Route: 065
     Dates: start: 20180807, end: 20180808
  26. METAMIZOLE SODIUM [Concomitant]
     Active Substance: METAMIZOLE SODIUM
     Dosage: 22 GTT DROPS, QD
     Route: 065
     Dates: start: 20190530, end: 20190531
  27. METAMIZOLE SODIUM [Concomitant]
     Active Substance: METAMIZOLE SODIUM
     Dosage: 18 GTT DROPS
     Route: 065
     Dates: start: 20200221, end: 20200226
  28. Mucopront [Concomitant]
     Indication: Cough
     Dosage: 5 MILLILITER, TID
     Route: 065
     Dates: start: 20161210, end: 20161221
  29. FUCIDIN [Concomitant]
     Active Substance: FUSIDATE SODIUM
     Indication: Rash
     Dosage: UNK UNK, BID
     Route: 065
     Dates: start: 20170603, end: 20170609
  30. CETIRIZINE HYDROCHLORIDE [Concomitant]
     Active Substance: CETIRIZINE HYDROCHLORIDE
     Indication: Rash
     Dosage: 5 GTT DROPS, BID
     Route: 065
     Dates: start: 20170605, end: 20170618
  31. AMOXICILLIN\CLAVULANIC ACID [Concomitant]
     Active Substance: AMOXICILLIN\CLAVULANIC ACID
     Indication: Otitis media
     Dosage: 4 MILLILITER, BID
     Route: 065
     Dates: start: 20180807, end: 20180812
  32. LACTOBACILLUS REUTERI [Concomitant]
     Active Substance: LACTOBACILLUS REUTERI
     Indication: Diarrhoea
     Dosage: 250 MILLILITER, BID
     Route: 065
     Dates: start: 20190124, end: 20190127
  33. CEFUROXIME [Concomitant]
     Active Substance: CEFUROXIME
     Indication: Oropharyngeal pain
     Dosage: 5 MILLILITER, BID
     Route: 065
     Dates: start: 20200224, end: 20200301
  34. CEFUROXIME [Concomitant]
     Active Substance: CEFUROXIME
     Indication: Cough

REACTIONS (2)
  - Haematochezia [Recovered/Resolved with Sequelae]
  - Hand fracture [Recovered/Resolved]

NARRATIVE: CASE EVENT DATE: 20160930
